FAERS Safety Report 9706728 (Version 4)
Quarter: 2014Q3

REPORT INFORMATION
  Report Type: Spontaneous
  Country: US (occurrence: US)
  Receive Date: 20131125
  Receipt Date: 20140709
  Transmission Date: 20150326
  Serious: Yes (Other)
  Sender: FDA-Public Use
  Company Number: US-BAYER-2013-141301

PATIENT
  Age: 41 Year
  Sex: Female

DRUGS (6)
  1. MIRENA [Suspect]
     Active Substance: LEVONORGESTREL
     Indication: CONTRACEPTION
     Dosage: 20 MCG/24HR, CONT
     Route: 015
     Dates: start: 20130612, end: 201405
  2. MIRENA [Suspect]
     Active Substance: LEVONORGESTREL
     Indication: OVARIAN CYST
  3. NUVARING [Concomitant]
     Active Substance: ETHINYL ESTRADIOL\ETONOGESTREL
  4. METRONIDAZOLE. [Concomitant]
     Active Substance: METRONIDAZOLE
     Dosage: 0.75 %, GEL
  5. PROZAC [Concomitant]
     Active Substance: FLUOXETINE HYDROCHLORIDE
     Dosage: 20 MG, 1 CAPSULE DAILY
     Route: 048
  6. FLUCONAZOLE. [Concomitant]
     Active Substance: FLUCONAZOLE
     Dosage: 150 MG, UNK
     Route: 048

REACTIONS (11)
  - Drug ineffective [None]
  - Device expulsion [None]
  - Vaginal haemorrhage [None]
  - Pain [None]
  - Off label use [None]
  - Device dislocation [None]
  - Medical device complication [None]
  - Genital haemorrhage [None]
  - Abdominal pain lower [None]
  - Abortion spontaneous [None]
  - Pregnancy with contraceptive device [None]

NARRATIVE: CASE EVENT DATE: 201309
